FAERS Safety Report 24468656 (Version 3)
Quarter: 2024Q4

REPORT INFORMATION
  Report Type: Spontaneous
  Country: AR (occurrence: AR)
  Receive Date: 20241018
  Receipt Date: 20241216
  Transmission Date: 20250115
  Serious: Yes (Death, Hospitalization)
  Sender: NOVARTIS
  Company Number: AR-002147023-NVSC2024AR194506

PATIENT
  Age: 70 Year
  Sex: Male

DRUGS (2)
  1. COSENTYX [Suspect]
     Active Substance: SECUKINUMAB
     Indication: Psoriasis
     Dosage: UNK
     Route: 065
  2. COSENTYX [Suspect]
     Active Substance: SECUKINUMAB
     Indication: Psoriatic arthropathy
     Dosage: UNK
     Route: 065
     Dates: start: 20240701, end: 20240829

REACTIONS (11)
  - Multiple organ dysfunction syndrome [Fatal]
  - Shock [Fatal]
  - Cardio-respiratory arrest [Fatal]
  - Cachexia [Fatal]
  - Diarrhoea [Fatal]
  - Mucosal inflammation [Fatal]
  - Weight decreased [Fatal]
  - Disseminated intravascular coagulation [Fatal]
  - Product availability issue [Unknown]
  - Off label use [Unknown]
  - General physical health deterioration [Unknown]

NARRATIVE: CASE EVENT DATE: 20240701
